FAERS Safety Report 5245657-0 (Version None)
Quarter: 2007Q1

REPORT INFORMATION
  Report Type: 
  Country: None (occurrence: None)
  Receive Date: 20070216
  Receipt Date: 20070201
  Transmission Date: 20070707
  Serious: Yes (Other)
  Sender: FDA-Public Use
  Company Number: CERZ-11508

PATIENT
  Age: 70 Year
  Sex: Female

DRUGS (1)
  1. CEREZYME [Suspect]
     Indication: GAUCHER'S DISEASE
     Dosage: 30 U/KG Q2WKS IV
     Route: 042
     Dates: start: 19970602

REACTIONS (1)
  - BREAST CANCER IN SITU [None]
